FAERS Safety Report 23294777 (Version 2)
Quarter: 2023Q4

REPORT INFORMATION
  Report Type: Spontaneous
  Country: JP (occurrence: None)
  Receive Date: 20231213
  Receipt Date: 20231218
  Transmission Date: 20240109
  Serious: Yes (Death, Life-Threatening)
  Sender: FDA-Public Use
  Company Number: 2023A280268

PATIENT
  Age: 82 Year
  Sex: Male

DRUGS (2)
  1. IMFINZI [Suspect]
     Active Substance: DURVALUMAB
     Indication: Hepatocellular carcinoma
     Route: 041
  2. IMJUDO [Suspect]
     Active Substance: TREMELIMUMAB\TREMELIMUMAB-ACTL
     Indication: Hepatocellular carcinoma
     Dosage: 300.0MG UNKNOWN
     Route: 041

REACTIONS (2)
  - Myasthenia gravis [Fatal]
  - Myocarditis [Fatal]
